FAERS Safety Report 7721352-0 (Version None)
Quarter: 2011Q3

REPORT INFORMATION
  Report Type: 
  Country: None (occurrence: None)
  Receive Date: 20110831
  Receipt Date: 20110127
  Transmission Date: 20111222
  Serious: No
  Sender: FDA-Public Use
  Company Number: US-BAYER-2011-010223

PATIENT
  Age: 44 Year
  Sex: Female

DRUGS (3)
  1. MIRENA [Suspect]
     Indication: MENSTRUAL DISORDER
  2. MIRENA [Suspect]
     Indication: DYSMENORRHOEA
  3. MIRENA [Suspect]
     Indication: PREMENSTRUAL SYNDROME
     Dosage: 20 MCG/24HR, CONT
     Route: 015
     Dates: start: 20080601

REACTIONS (6)
  - HOT FLUSH [None]
  - AMENORRHOEA [None]
  - GENITAL HAEMORRHAGE [None]
  - NIGHT SWEATS [None]
  - BREAST TENDERNESS [None]
  - PYREXIA [None]
